FAERS Safety Report 7745777-2 (Version None)
Quarter: 2011Q3

REPORT INFORMATION
  Report Type: 
  Country: None (occurrence: None)
  Receive Date: 20110830
  Receipt Date: 20110815
  Transmission Date: 20111222
  Serious: Yes (Other)
  Sender: FDA-Public Use
  Company Number: 2011SP038601

PATIENT
  Age: 26 Year
  Sex: Female

DRUGS (1)
  1. NUVARING [Suspect]
     Indication: CONTRACEPTION
     Dosage: VAG
     Route: 067
     Dates: start: 20110703

REACTIONS (11)
  - NASOPHARYNGITIS [None]
  - RASH [None]
  - DIZZINESS [None]
  - JUGULAR VEIN DISTENSION [None]
  - SENSATION OF HEAVINESS [None]
  - PAIN IN EXTREMITY [None]
  - NAUSEA [None]
  - VENOUS INSUFFICIENCY [None]
  - BREAST PAIN [None]
  - METRORRHAGIA [None]
  - VASCULAR RUPTURE [None]
